FAERS Safety Report 9866224 (Version 2)
Quarter: 2014Q1

REPORT INFORMATION
  Report Type: Spontaneous
  Country: US (occurrence: US)
  Receive Date: 20140203
  Receipt Date: 20140203
  Transmission Date: 20141002
  Serious: No
  Sender: FDA-Public Use
  Company Number: US-ALLERGAN-1317298US

PATIENT
  Age: 72 Year
  Sex: Female

DRUGS (7)
  1. REFRESH OPTIVE ADVANCED [Suspect]
     Indication: DRY EYE
     Dosage: 2 GTT, UNK
     Route: 047
     Dates: start: 20131030, end: 20131031
  2. RESTASIS [Suspect]
     Indication: DRY EYE
     Dosage: 2 GTT, BID
     Route: 047
  3. TEARS NATURALE                     /00134201/ [Concomitant]
     Indication: DRY EYE
     Dosage: UNK UNK, QHS
     Route: 047
  4. REFRESH P.M. [Concomitant]
     Indication: DRY EYE
     Dosage: UNK UNK, QHS
     Route: 047
  5. BLOOD PRESSURE MEDICATIONS [Concomitant]
     Indication: HYPERTENSION
     Dosage: UNK
  6. NEURONTIN [Concomitant]
     Indication: NEURALGIA
     Dosage: UNK
  7. THYROID MEDICATION [Concomitant]
     Indication: THYROID DISORDER
     Dosage: UNK

REACTIONS (2)
  - Nasal congestion [Not Recovered/Not Resolved]
  - Eye irritation [Not Recovered/Not Resolved]
